FAERS Safety Report 4376703-4 (Version None)
Quarter: 2004Q2

REPORT INFORMATION
  Report Type: 
  Country: None (occurrence: None)
  Receive Date: 20040608
  Receipt Date: 20040526
  Transmission Date: 20050107
  Serious: Yes (Other)
  Sender: FDA-Public Use
  Company Number: US-JNJFOC-20040506348

PATIENT
  Age: 13 Year
  Sex: Female

DRUGS (9)
  1. REMICADE [Suspect]
     Indication: TAKAYASU'S ARTERITIS
     Dosage: 300 MG, INTRAVENOUS
     Route: 042
     Dates: start: 20040317
  2. METHOTREXATE SODIUM [Concomitant]
  3. FOLIC ACID [Concomitant]
  4. BACTRIM (TABLETS) BACTRIM [Concomitant]
  5. PREDNISONE TAB [Concomitant]
  6. ATENOLOL [Concomitant]
  7. PEPCID [Concomitant]
  8. LASIX [Concomitant]
  9. ASPIRIN TAB [Concomitant]

REACTIONS (3)
  - ALANINE AMINOTRANSFERASE INCREASED [None]
  - ASPARTATE AMINOTRANSFERASE INCREASED [None]
  - EOSINOPHIL COUNT INCREASED [None]
